FAERS Safety Report 7323780-4 (Version None)
Quarter: 2011Q1

REPORT INFORMATION
  Report Type: 
  Country: None (occurrence: None)
  Receive Date: 20110301
  Receipt Date: 20110218
  Transmission Date: 20110831
  Serious: Yes (Hospitalization)
  Sender: FDA-Public Use
  Company Number: US-ALEXION-A201100175

PATIENT
  Sex: Male

DRUGS (8)
  1. COUMADIN [Concomitant]
     Dosage: 5 MG, QD
     Route: 048
  2. SPIRONOLACTONE [Concomitant]
     Dosage: 100 MG, QD
  3. FOLIC ACID [Concomitant]
     Dosage: 1 MG, QD
     Route: 048
  4. SOLIRIS [Suspect]
     Indication: PAROXYSMAL NOCTURNAL HAEMOGLOBINURIA
     Dosage: 900 MG, UNK
     Route: 042
     Dates: end: 20110122
  5. FERROUS SULFATE TAB [Concomitant]
     Dosage: UNK
  6. SOLIRIS [Suspect]
     Dosage: 600 MG, QW
     Dates: start: 20110201
  7. LASIX [Concomitant]
     Dosage: 40 MG, QD
     Route: 048
  8. PEPCID [Concomitant]
     Dosage: 20 MG, QD
     Route: 048

REACTIONS (6)
  - DEHYDRATION [None]
  - ASCITES [None]
  - OEDEMA PERIPHERAL [None]
  - ABDOMINAL WALL DISORDER [None]
  - CONFUSIONAL STATE [None]
  - CONDITION AGGRAVATED [None]
